FAERS Safety Report 24380397 (Version 1)
Quarter: 2024Q3

REPORT INFORMATION
  Report Type: Spontaneous
  Country: US (occurrence: US)
  Receive Date: 20240930
  Receipt Date: 20240930
  Transmission Date: 20241017
  Serious: No
  Sender: SANOFI AVENTIS
  Company Number: US-SA-2024SA275581

PATIENT
  Sex: Female

DRUGS (2)
  1. KEVZARA [Suspect]
     Active Substance: SARILUMAB
     Dosage: 200 MG, QOW
     Route: 058
  2. BELSOMRA [Concomitant]
     Active Substance: SUVOREXANT

REACTIONS (5)
  - COVID-19 [Recovering/Resolving]
  - Dysgeusia [Unknown]
  - Blood glucose increased [Unknown]
  - Cardiac disorder [Unknown]
  - Musculoskeletal discomfort [Unknown]
